FAERS Safety Report 17213618 (Version 1)
Quarter: 2020Q1

REPORT INFORMATION
  Report Type: Spontaneous
  Country: US (occurrence: US)
  Receive Date: 20191227
  Receipt Date: 20191227
  Transmission Date: 20200409
  Serious: No
  Sender: FDA-Public Use
  Company Number: None

PATIENT
  Age: 54 Year
  Sex: Male

DRUGS (1)
  1. GEMCITABINE. [Suspect]
     Active Substance: GEMCITABINE
     Route: 042

REACTIONS (4)
  - Blood creatine phosphokinase increased [None]
  - Pain in extremity [None]
  - Oedema peripheral [None]
  - Myositis [None]

NARRATIVE: CASE EVENT DATE: 20190908
